FAERS Safety Report 20725912 (Version 1)
Quarter: 2022Q2

REPORT INFORMATION
  Report Type: Spontaneous
  Country: US (occurrence: None)
  Receive Date: 20220419
  Receipt Date: 20220419
  Transmission Date: 20220720
  Serious: Yes (Other)
  Sender: FDA-Public Use
  Company Number: None

PATIENT
  Age: 58 Year
  Sex: Female
  Weight: 78.75 kg

DRUGS (1)
  1. CHLOROPROCAINE [Suspect]
     Active Substance: CHLOROPROCAINE
     Indication: Local anaesthesia
     Dates: start: 20220407, end: 20220407

REACTIONS (5)
  - Nausea [None]
  - Loss of consciousness [None]
  - Seizure [None]
  - Movement disorder [None]
  - Feeling abnormal [None]

NARRATIVE: CASE EVENT DATE: 20220407
